FAERS Safety Report 7322769-9 (Version None)
Quarter: 2011Q1

REPORT INFORMATION
  Report Type: 
  Country: None (occurrence: None)
  Receive Date: 20110301
  Receipt Date: 20110221
  Transmission Date: 20110831
  Serious: Yes (Other)
  Sender: FDA-Public Use
  Company Number: JP-ASTELLAS-2011JP000824

PATIENT
  Sex: Female
  Weight: 55 kg

DRUGS (8)
  1. ALCADOL [Concomitant]
     Dosage: UNK
     Route: 048
  2. JUVELA [Concomitant]
     Route: 048
  3. CINAL [Concomitant]
     Dosage: UNK
     Route: 048
  4. ASPARA-CA [Concomitant]
     Dosage: UNK
     Route: 048
  5. PYDOXAL [Concomitant]
     Route: 048
  6. VESICARE [Suspect]
     Indication: HYPERTONIC BLADDER
     Dosage: 5 MG, UID/QD
     Route: 048
     Dates: start: 20101222, end: 20101230
  7. CONIEL [Concomitant]
     Dosage: UNK
     Route: 048
  8. BONALON [Concomitant]
     Route: 048

REACTIONS (1)
  - MUSCULAR WEAKNESS [None]
